FAERS Safety Report 5484307-5 (Version None)
Quarter: 2007Q4

REPORT INFORMATION
  Report Type: 
  Country: None (occurrence: None)
  Receive Date: 20071012
  Receipt Date: 20071010
  Transmission Date: 20080405
  Serious: No
  Sender: FDA-Public Use
  Company Number: US-BOEHRINGER INGELHEIM PHARMACEUTICALS, INC.-2007-BP-20778BP

PATIENT
  Sex: Female

DRUGS (2)
  1. MOBIC [Suspect]
     Indication: INFLAMMATION
     Route: 048
     Dates: start: 20070902
  2. MOBIC [Suspect]
     Indication: PAIN

REACTIONS (4)
  - DRY MOUTH [None]
  - HYPERSENSITIVITY [None]
  - NASAL DRYNESS [None]
  - SNEEZING [None]
